FAERS Safety Report 4814284-9 (Version None)
Quarter: 2005Q4

REPORT INFORMATION
  Report Type: 
  Country: None (occurrence: None)
  Receive Date: 20051026
  Receipt Date: 20051006
  Transmission Date: 20060501
  Serious: Yes (Other)
  Sender: FDA-Public Use
  Company Number: USA0510110547

PATIENT
  Age: 28 Year
  Sex: Male

DRUGS (9)
  1. STRATTERA [Suspect]
     Dosage: 60 MG DAY
     Dates: start: 20050913, end: 20050930
  2. PAXIL CR [Concomitant]
  3. LITHIUM [Concomitant]
  4. KLONOPIN [Concomitant]
  5. GABITRIL [Concomitant]
  6. TRAZODONE HCL [Concomitant]
  7. CHLORAL HYDRATE [Concomitant]
  8. DEPAKOTE [Concomitant]
  9. TENEX (GUANFACINE HYDROCLORIDE) [Concomitant]

REACTIONS (5)
  - ANXIETY [None]
  - CONVULSION [None]
  - HYPERHIDROSIS [None]
  - KIDNEY INFECTION [None]
  - TREMOR [None]
